FAERS Safety Report 8914542 (Version 1)
Quarter: 2012Q4

REPORT INFORMATION
  Report Type: 
  Country: FR (occurrence: FR)
  Receive Date: 20121119
  Receipt Date: 20121119
  Transmission Date: 20130627
  Serious: Yes (Other)
  Sender: FDA-Public Use
  Company Number: FR-PFIZER INC-2012283484

PATIENT
  Sex: Female

DRUGS (1)
  1. MINIDRIL [Suspect]
     Dosage: ethynilestradiol 30 ?g/levonorgestrel 150 ?g

REACTIONS (1)
  - Neutropenia [Unknown]
